FAERS Safety Report 21263919 (Version 3)
Quarter: 2022Q3

REPORT INFORMATION
  Report Type: Report from Study
  Country: US (occurrence: US)
  Receive Date: 20220829
  Receipt Date: 20220921
  Transmission Date: 20221026
  Serious: No
  Sender: FDA-Public Use
  Company Number: US-NOVARTISTESTPH-NVSC2022US193794

PATIENT
  Sex: Female

DRUGS (1)
  1. KISQALI [Suspect]
     Active Substance: RIBOCICLIB
     Indication: Product used for unknown indication
     Dosage: 400 MG, QD
     Route: 048
     Dates: start: 20220629, end: 20220918

REACTIONS (2)
  - White blood cell count decreased [Unknown]
  - Product dose omission issue [Unknown]
